FAERS Safety Report 5929574-6 (Version None)
Quarter: 2008Q4

REPORT INFORMATION
  Report Type: 
  Country: None (occurrence: None)
  Receive Date: 20081024
  Receipt Date: 20081020
  Transmission Date: 20090506
  Serious: Yes (Hospitalization)
  Sender: FDA-Public Use
  Company Number: US-MERCK-0810USA03828

PATIENT
  Age: 72 Year
  Sex: Female

DRUGS (2)
  1. ZOCOR [Suspect]
     Indication: BLOOD CHOLESTEROL
     Route: 048
  2. ATENOLOL [Concomitant]
     Route: 065

REACTIONS (3)
  - APNOEA [None]
  - HYPERTENSION [None]
  - RASH [None]
